FAERS Safety Report 15509743 (Version 1)
Quarter: 2018Q4

REPORT INFORMATION
  Report Type: Spontaneous
  Country: US (occurrence: US)
  Receive Date: 20181010
  Receipt Date: 20181010
  Transmission Date: 20190205
  Serious: Yes (Hospitalization)
  Sender: FDA-Public Use
  Company Number: None

PATIENT
  Age: 59 Year

DRUGS (1)
  1. IBRANCE [Suspect]
     Active Substance: PALBOCICLIB
     Indication: NEOPLASM MALIGNANT
     Dosage: ?          OTHER FREQUENCY:DAILY X 21DAYS;?
     Route: 048
     Dates: start: 20180802

REACTIONS (3)
  - Fluid retention [None]
  - Sepsis [None]
  - Pyrexia [None]

NARRATIVE: CASE EVENT DATE: 20181004
